FAERS Safety Report 23662097 (Version 1)
Quarter: 2024Q1

REPORT INFORMATION
  Report Type: Spontaneous
  Country: GB (occurrence: GB)
  Receive Date: 20240322
  Receipt Date: 20240322
  Transmission Date: 20240410
  Serious: Yes (Other)
  Sender: FDA-Public Use
  Company Number: None

PATIENT

DRUGS (4)
  1. ATORVASTATIN [Suspect]
     Active Substance: ATORVASTATIN
     Indication: Adverse drug reaction
     Dosage: ONE TO BE TAKEN EACH DAY
     Route: 065
     Dates: start: 20240209, end: 20240308
  2. ATORVASTATIN [Concomitant]
     Active Substance: ATORVASTATIN
     Indication: Adverse drug reaction
     Dosage: ONE TO BE TAKEN EACH DAY
     Route: 065
     Dates: start: 20240209, end: 20240308
  3. FLUCLOXACILLIN [Concomitant]
     Active Substance: FLUCLOXACILLIN
     Indication: Adverse drug reaction
     Dosage: ONE TO BE TAKEN FOUR TIMES A DAY
     Route: 065
     Dates: start: 20240112, end: 20240210
  4. HYALURONATE SODIUM [Concomitant]
     Active Substance: HYALURONATE SODIUM
     Indication: Penis disorder
     Dosage: TO BE USED AS DIRECTED IN THE AFFECTED EYE(S)
     Route: 065
     Dates: start: 20240209

REACTIONS (1)
  - Deafness [Unknown]

NARRATIVE: CASE EVENT DATE: 20240301
